FAERS Safety Report 5566571-7 (Version None)
Quarter: 2007Q4

REPORT INFORMATION
  Report Type: 
  Country: None (occurrence: None)
  Receive Date: 20071214
  Receipt Date: 20071205
  Transmission Date: 20080405
  Serious: No
  Sender: FDA-Public Use
  Company Number: MPS1-10759

PATIENT
  Age: 1 Year
  Weight: 8.55 kg

DRUGS (2)
  1. ALDURAZYME [Suspect]
     Indication: MUCOPOLYSACCHARIDOSIS I
     Dosage: 500 UNITS QOW IV
     Route: 042
  2. ALDURAZYME [Suspect]
     Indication: MUCOPOLYSACCHARIDOSIS I
     Dosage: 1000 UNITS QOW IV
     Route: 042

REACTIONS (1)
  - STAPHYLOCOCCAL SEPSIS [None]
